FAERS Safety Report 9154610 (Version 1)
Quarter: 2013Q1

REPORT INFORMATION
  Report Type: Spontaneous
  Country: ES (occurrence: None)
  Receive Date: 20130207
  Receipt Date: 20130207
  Transmission Date: 20140127
  Serious: Yes (Other)
  Sender: FDA-Public Use
  Company Number: FK201300295

PATIENT
  Age: 53 Year
  Sex: Male

DRUGS (4)
  1. FLUDARABINE [Suspect]
     Indication: CHRONIC LYMPHOCYTIC LEUKAEMIA
     Dosage: SECOND EXPOSURE TO PURINE ANALOG
  2. CLADRIBINE [Suspect]
     Indication: CHRONIC LYMPHOCYTIC LEUKAEMIA
     Dosage: FIRST EXPOSURE TO PURINE ANALOG
  3. MITOXANTRONE [Suspect]
     Indication: CHRONIC LYMPHOCYTIC LEUKAEMIA
     Dosage: FIRST EXPOSURE
  4. CYCLOPHOSPHAMIDE [Suspect]
     Indication: CHRONIC LYMPHOCYTIC LEUKAEMIA
     Dosage: FIRST EXPOSURE

REACTIONS (1)
  - Small cell lung cancer [None]
